FAERS Safety Report 14416795 (Version 1)
Quarter: 2018Q1

REPORT INFORMATION
  Report Type: Spontaneous
  Country: US (occurrence: US)
  Receive Date: 20180119
  Receipt Date: 20180119
  Transmission Date: 20180509
  Serious: No
  Sender: FDA-Public Use
  Company Number: None

PATIENT
  Age: 20 Year
  Sex: Male

DRUGS (1)
  1. INSULIN GLARGINE [Suspect]
     Active Substance: INSULIN GLARGINE
     Indication: HYPERGLYCAEMIA
     Dosage: 10 UNITS EVERY 12 HOURS SC
     Route: 058
     Dates: start: 20170814

REACTIONS (11)
  - Dyspnoea [None]
  - Exposure to communicable disease [None]
  - Pneumonia [None]
  - Urinary tract infection [None]
  - Hypoglycaemia [None]
  - Depressed level of consciousness [None]
  - Pyrexia [None]
  - Somnolence [None]
  - Hypophagia [None]
  - Sepsis [None]
  - White blood cell count increased [None]

NARRATIVE: CASE EVENT DATE: 20170816
